FAERS Safety Report 5328744-8 (Version None)
Quarter: 2007Q2

REPORT INFORMATION
  Report Type: 
  Country: None (occurrence: None)
  Receive Date: 20070518
  Receipt Date: 20070510
  Transmission Date: 20071010
  Serious: Yes (Hospitalization)
  Sender: FDA-Public Use
  Company Number: FR-AVENTIS-200711674FR

PATIENT
  Age: 82 Year
  Sex: Male
  Weight: 63 kg

DRUGS (7)
  1. LANTUS [Suspect]
     Route: 058
  2. METFORMIN HCL [Suspect]
     Route: 048
  3. FLUOROURACIL [Suspect]
     Route: 042
     Dates: start: 20041227, end: 20060829
  4. CAMPTO                             /01280202/ [Suspect]
     Route: 042
     Dates: start: 20060411, end: 20060829
  5. ELOXATIN [Suspect]
     Route: 042
     Dates: start: 20051017, end: 20060221
  6. OMEPRAZOLE [Concomitant]
     Indication: DRUG USE FOR UNKNOWN INDICATION
  7. DOLIPRANE [Concomitant]
     Indication: DRUG USE FOR UNKNOWN INDICATION

REACTIONS (1)
  - INTERSTITIAL LUNG DISEASE [None]
